FAERS Safety Report 4442800-8 (Version None)
Quarter: 2004Q3

REPORT INFORMATION
  Report Type: 
  Country: None (occurrence: None)
  Receive Date: 20040903
  Receipt Date: 20040519
  Transmission Date: 20050211
  Serious: Yes (Other)
  Sender: FDA-Public Use
  Company Number: 2004UW10443

PATIENT
  Age: 65 Year
  Sex: Female
  Weight: 63.5036 kg

DRUGS (4)
  1. CRESTOR [Suspect]
     Indication: HYPERCHOLESTEROLAEMIA
     Dosage: 10 MG QD PO
     Route: 048
     Dates: start: 20040504
  2. METFORMIN HCL [Concomitant]
  3. SYNTHROID [Concomitant]
  4. CAPTOPRIL [Concomitant]

REACTIONS (2)
  - GLOSSODYNIA [None]
  - STOMATITIS [None]
